FAERS Safety Report 5846044-4 (Version None)
Quarter: 2008Q3

REPORT INFORMATION
  Report Type: 
  Country: None (occurrence: None)
  Receive Date: 20080814
  Receipt Date: 20080812
  Transmission Date: 20090109
  Serious: Yes (Other)
  Sender: FDA-Public Use
  Company Number: GB-WYE-G01995308

PATIENT
  Sex: Female

DRUGS (3)
  1. EFFEXOR XR [Suspect]
     Dosage: 225MG, FREQUENCY UNKNOWN
     Route: 048
     Dates: end: 20070101
  2. EFFEXOR XR [Suspect]
     Dosage: UNKNOWN
  3. LITHIUM CARBONATE [Concomitant]
     Dosage: UNKNOWN

REACTIONS (1)
  - CARDIAC DISORDER [None]
